FAERS Safety Report 7846004-8 (Version None)
Quarter: 2011Q4

REPORT INFORMATION
  Report Type: 
  Country: None (occurrence: None)
  Receive Date: 20111025
  Receipt Date: 20111018
  Transmission Date: 20120403
  Serious: Yes (Death)
  Sender: FDA-Public Use
  Company Number: BR-BAXTER-2011BH033000

PATIENT
  Age: 58 Year

DRUGS (4)
  1. IFOSFAMIDE [Suspect]
     Indication: MALIGNANT FIBROUS HISTIOCYTOMA
     Route: 042
  2. DOXORUBICIN HCL [Suspect]
     Indication: MALIGNANT FIBROUS HISTIOCYTOMA
     Route: 040
  3. MESNA [Concomitant]
     Indication: PROPHYLAXIS
     Route: 065
  4. NEUPOGEN [Concomitant]
     Indication: PROPHYLAXIS
     Route: 065

REACTIONS (1)
  - SUDDEN DEATH [None]
